FAERS Safety Report 16488735 (Version 5)
Quarter: 2020Q1

REPORT INFORMATION
  Report Type: Report from Study
  Country: US (occurrence: US)
  Receive Date: 20190627
  Receipt Date: 20200325
  Transmission Date: 20200409
  Serious: Yes (Hospitalization)
  Sender: FDA-Public Use
  Company Number: US-ACTELION-A-NJ2019-186863

PATIENT
  Age: 81 Year
  Sex: Female

DRUGS (12)
  1. TRACLEER [Suspect]
     Active Substance: BOSENTAN
     Indication: PULMONARY ARTERIAL HYPERTENSION
     Dosage: 125 MG, BID
     Route: 048
     Dates: start: 20190306
  2. ADEMPAS [Concomitant]
     Active Substance: RIOCIGUAT
     Dosage: UNK
     Dates: start: 20190321
  3. CLINDAMYCIN. [Concomitant]
     Active Substance: CLINDAMYCIN
  4. METOLAZONE. [Concomitant]
     Active Substance: METOLAZONE
  5. ALPRAZOLAM. [Concomitant]
     Active Substance: ALPRAZOLAM
  6. CARBIDOPA + L-DOPA [Concomitant]
     Active Substance: CARBIDOPA\LEVODOPA
  7. ALBUTEROL. [Concomitant]
     Active Substance: ALBUTEROL
  8. POTASSIUM CHLORIDE. [Concomitant]
     Active Substance: POTASSIUM CHLORIDE
  9. AMIODARONE [Concomitant]
     Active Substance: AMIODARONE
  10. METOPROLOL. [Concomitant]
     Active Substance: METOPROLOL
  11. TRACLEER [Suspect]
     Active Substance: BOSENTAN
     Dosage: 62.5 MG
     Route: 048
  12. METHYLPRED [Concomitant]
     Active Substance: METHYLPREDNISOLONE

REACTIONS (7)
  - Wheezing [Not Recovered/Not Resolved]
  - Hospitalisation [Not Recovered/Not Resolved]
  - Diverticulum [Not Recovered/Not Resolved]
  - Malaise [Unknown]
  - Pulmonary oedema [Not Recovered/Not Resolved]
  - Atrial fibrillation [Not Recovered/Not Resolved]
  - Pleural effusion [Not Recovered/Not Resolved]

NARRATIVE: CASE EVENT DATE: 20190708
